FAERS Safety Report 12774409 (Version 1)
Quarter: 2016Q3

REPORT INFORMATION
  Report Type: Spontaneous
  Country: US (occurrence: US)
  Receive Date: 20160920
  Receipt Date: 20160920
  Transmission Date: 20161109
  Serious: Yes (Hospitalization)
  Sender: FDA-Public Use
  Company Number: None

PATIENT

DRUGS (25)
  1. SOFOSBUVIR 400 MG GILEAD [Suspect]
     Active Substance: SOFOSBUVIR
     Indication: HEPATITIS C
     Route: 048
     Dates: start: 20160510, end: 20160804
  2. LACTULOSE. [Concomitant]
     Active Substance: LACTULOSE
  3. PROTONIX [Concomitant]
     Active Substance: PANTOPRAZOLE SODIUM
  4. BACTRIM [Concomitant]
     Active Substance: SULFAMETHOXAZOLE\TRIMETHOPRIM
  5. DEXTROSE. [Concomitant]
     Active Substance: DEXTROSE
  6. HUMALOG [Concomitant]
     Active Substance: INSULIN LISPRO
  7. RIBAVIRIN  600MG [Suspect]
     Active Substance: RIBAVIRIN
     Indication: HEPATITIS C
     Route: 048
     Dates: start: 20160510, end: 20160804
  8. HUMULIN NOS [Concomitant]
     Active Substance: INSULIN HUMAN
  9. TYLENOL [Concomitant]
     Active Substance: ACETAMINOPHEN
  10. SENNA [Concomitant]
     Active Substance: SENNA LEAF\SENNOSIDES\SENNOSIDES A AND B
  11. RIFAXIMIN [Concomitant]
     Active Substance: RIFAXIMIN
  12. ZOSYN [Concomitant]
     Active Substance: PIPERACILLIN SODIUM\TAZOBACTAM SODIUM
  13. MORPHINE [Concomitant]
     Active Substance: MORPHINE
  14. LASIX [Concomitant]
     Active Substance: FUROSEMIDE
  15. SPIRONOLACTONE. [Concomitant]
     Active Substance: SPIRONOLACTONE
  16. VANCOMYCIN [Concomitant]
     Active Substance: VANCOMYCIN
  17. DULCOLAX NOS [Concomitant]
     Active Substance: BISACODYL OR DOCUSATE SODIUM
  18. NORCO [Concomitant]
     Active Substance: ACETAMINOPHEN\HYDROCODONE BITARTRATE
  19. LOVENOX [Concomitant]
     Active Substance: ENOXAPARIN SODIUM
  20. ZINC [Concomitant]
     Active Substance: ZINC\ZINC CHLORIDE
  21. CEFTRIAXONE. [Concomitant]
     Active Substance: CEFTRIAXONE
  22. LANTUS [Concomitant]
     Active Substance: INSULIN GLARGINE
  23. KEFLEX [Concomitant]
     Active Substance: CEPHALEXIN
  24. AUGMENTIN [Concomitant]
     Active Substance: AMOXICILLIN\CLAVULANATE POTASSIUM
  25. INSULIN [Concomitant]
     Active Substance: INSULIN NOS

REACTIONS (3)
  - Bursitis [None]
  - Fall [None]
  - Cellulitis [None]

NARRATIVE: CASE EVENT DATE: 20160614
